FAERS Safety Report 7902156-2 (Version None)
Quarter: 2011Q4

REPORT INFORMATION
  Report Type: 
  Country: None (occurrence: None)
  Receive Date: 20111107
  Receipt Date: 20111107
  Transmission Date: 20120403
  Serious: Yes (Hospitalization)
  Sender: FDA-Public Use
  Company Number: None

PATIENT
  Sex: Male

DRUGS (1)
  1. PEGASYS [Suspect]
     Dosage: 180MCG WEEKLY SUB-Q
     Route: 058
     Dates: start: 20110817, end: 20111001

REACTIONS (3)
  - BLISTER [None]
  - VOMITING [None]
  - WEIGHT DECREASED [None]
